FAERS Safety Report 9302738 (Version 1)
Quarter: 2013Q2

REPORT INFORMATION
  Report Type: Report from Study
  Country: BR (occurrence: BR)
  Receive Date: 20130522
  Receipt Date: 20130522
  Transmission Date: 20140414
  Serious: Yes (Other)
  Sender: FDA-Public Use
  Company Number: PHHY2013BR041117

PATIENT
  Sex: Female
  Weight: 68 kg

DRUGS (7)
  1. ACLASTA [Suspect]
     Indication: OSTEOPOROSIS
     Dosage: 5 MG / 100 ML
     Route: 042
     Dates: start: 2011
  2. ACLASTA [Suspect]
     Dosage: 5 MG / 100 ML
     Route: 042
  3. SYNTHROID [Concomitant]
     Dosage: UNK UKN, UNK
  4. CITONEURIN                         /00499701/ [Concomitant]
     Indication: HYPERTHYROIDISM
     Dosage: 1 DF, EVERY 3 DAYS
     Route: 048
  5. DUO-TRAVATAN [Concomitant]
     Indication: GLAUCOMA
     Dosage: 5 MG+ 6,8 MG
  6. DEPURA [Concomitant]
     Indication: OSTEOPOROSIS
     Dosage: 35 DRP, PER WEEK
     Route: 048
  7. FOLIC ACID [Concomitant]
     Indication: OSTEOPOROSIS
     Dosage: 2 DF, PER WEEK
     Route: 048

REACTIONS (8)
  - Hypokinesia [Recovered/Resolved]
  - Syncope [Recovered/Resolved]
  - Blood pressure decreased [Recovered/Resolved]
  - Back pain [Recovered/Resolved]
  - Nausea [Recovered/Resolved]
  - Somnolence [Recovered/Resolved]
  - Musculoskeletal chest pain [Recovered/Resolved]
  - Pain [Recovered/Resolved]
